FAERS Safety Report 10094681 (Version 1)
Quarter: 2014Q2

REPORT INFORMATION
  Report Type: Spontaneous
  Country: US (occurrence: None)
  Receive Date: 20140418
  Receipt Date: 20140418
  Transmission Date: 20141212
  Serious: Yes (Hospitalization, Other)
  Sender: FDA-Public Use
  Company Number: FK201401315

PATIENT
  Age: 64 Year
  Sex: Female

DRUGS (5)
  1. HYDRALAZINE [Suspect]
     Indication: HYPERTENSION
  2. CLONIDINE (CLONIDINE) [Concomitant]
  3. HYDROCHLOROTHIAZIDE (HYDROCHLOROTHIAZIDE) [Concomitant]
  4. VERAPAMIL (VERAPAMIL) [Concomitant]
  5. AMLODIPINE (AMLODIPINE) [Concomitant]

REACTIONS (10)
  - Glomerulonephritis rapidly progressive [None]
  - Glomerulonephritis rapidly progressive [None]
  - Vasculitis [None]
  - Lupus-like syndrome [None]
  - Fatigue [None]
  - Cough [None]
  - Weight decreased [None]
  - Contusion [None]
  - Crepitations [None]
  - Renal failure acute [None]
